FAERS Safety Report 25177994 (Version 1)
Quarter: 2025Q2

REPORT INFORMATION
  Report Type: Report from Study
  Country: CA (occurrence: CA)
  Receive Date: 20250409
  Receipt Date: 20250409
  Transmission Date: 20250716
  Serious: No
  Sender: JOHNSON AND JOHNSON
  Company Number: CA-JNJFOC-20250411895

PATIENT
  Age: 35 Year
  Sex: Female

DRUGS (1)
  1. SIMPONI [Suspect]
     Active Substance: GOLIMUMAB
     Indication: Rheumatoid arthritis
     Route: 058

REACTIONS (4)
  - Musculoskeletal stiffness [Recovered/Resolved]
  - Therapeutic response decreased [Unknown]
  - Device deployment issue [Unknown]
  - Off label use [Unknown]

NARRATIVE: CASE EVENT DATE: 20250101
